FAERS Safety Report 9250274 (Version 3)
Quarter: 2014Q2

REPORT INFORMATION
  Report Type: Spontaneous
  Country: US (occurrence: US)
  Receive Date: 20130424
  Receipt Date: 20140401
  Transmission Date: 20141212
  Serious: No
  Sender: FDA-Public Use
  Company Number: US-ASTRAZENECA-2013SE27388

PATIENT
  Age: 60 Year
  Sex: Female

DRUGS (13)
  1. NEXIUM [Suspect]
     Indication: HYPERCHLORHYDRIA
     Dosage: 40 MG 2 OR 1 FOR A DAY
     Route: 048
     Dates: start: 2002, end: 201201
  2. NEXIUM [Suspect]
     Indication: GASTROOESOPHAGEAL REFLUX DISEASE
     Dosage: 40 MG 2 OR 1 FOR A DAY
     Route: 048
     Dates: start: 2002, end: 201201
  3. NEXIUM [Suspect]
     Indication: HYPERCHLORHYDRIA
     Route: 048
     Dates: start: 20030911
  4. NEXIUM [Suspect]
     Indication: GASTROOESOPHAGEAL REFLUX DISEASE
     Route: 048
     Dates: start: 20030911
  5. NEXIUM [Suspect]
     Indication: HYPERCHLORHYDRIA
     Route: 048
     Dates: end: 2012
  6. NEXIUM [Suspect]
     Indication: GASTROOESOPHAGEAL REFLUX DISEASE
     Route: 048
     Dates: end: 2012
  7. PRILOSEC OTC [Suspect]
     Indication: GASTROOESOPHAGEAL REFLUX DISEASE
     Route: 048
     Dates: start: 20060124
  8. PRILOSEC OTC [Suspect]
     Indication: GASTROOESOPHAGEAL REFLUX DISEASE
     Route: 048
     Dates: start: 20120131, end: 2013
  9. OMEPRAZOLE [Suspect]
     Indication: GASTROOESOPHAGEAL REFLUX DISEASE
     Dosage: 20 TO 40MG
     Route: 048
  10. ZIKS [Concomitant]
     Indication: PAIN
  11. LANSOPRAZOLE DR [Concomitant]
  12. TRIAM/HCT [Concomitant]
     Dosage: 37.5/25 MG CAPSULE
  13. PROTONIX [Concomitant]
     Dates: start: 20120822, end: 20121008

REACTIONS (31)
  - Osteoporosis [Unknown]
  - Bone disorder [Unknown]
  - Multiple fractures [Unknown]
  - Joint injury [Unknown]
  - Upper limb fracture [Unknown]
  - Limb injury [Unknown]
  - Gastrointestinal disorder [Unknown]
  - Spinal deformity [Unknown]
  - Abdominal distension [Unknown]
  - Musculoskeletal pain [Unknown]
  - Fatigue [Unknown]
  - Calcium deficiency [Unknown]
  - Arthritis [Unknown]
  - Vitamin D deficiency [Unknown]
  - Rheumatoid arthritis [Unknown]
  - Exostosis [Unknown]
  - Plantar fasciitis [Unknown]
  - Tenosynovitis [Unknown]
  - Ligament sprain [Unknown]
  - Contusion [Unknown]
  - Foot deformity [Unknown]
  - Traumatic haematoma [Unknown]
  - Joint dislocation [Unknown]
  - Knee deformity [Unknown]
  - Osteoarthritis [Unknown]
  - Fall [Unknown]
  - Foot fracture [Unknown]
  - Blood magnesium decreased [Unknown]
  - Headache [Unknown]
  - Flatulence [Unknown]
  - Malaise [Unknown]
